FAERS Safety Report 9026651 (Version 1)
Quarter: 2013Q1

REPORT INFORMATION
  Report Type: Spontaneous
  Country: GB (occurrence: None)
  Receive Date: 20130104
  Receipt Date: 20130104
  Transmission Date: 20140127
  Serious: Yes (Other)
  Sender: FDA-Public Use
  Company Number: 2012031099

PATIENT
  Sex: Female

DRUGS (1)
  1. BERINERT (CI ESTERASE INHIBITOR, HUMAN) [Suspect]

REACTIONS (2)
  - Abortion [None]
  - Exposure during pregnancy [None]
